FAERS Safety Report 20336785 (Version 1)
Quarter: 2022Q1

REPORT INFORMATION
  Report Type: Spontaneous
  Country: CA (occurrence: CA)
  Receive Date: 20220114
  Receipt Date: 20220114
  Transmission Date: 20220423
  Serious: Yes (Other)
  Sender: FDA-Public Use
  Company Number: CA-FERRINGPH-2022FE00106

PATIENT
  Age: 53 Year
  Sex: Female

DRUGS (5)
  1. ENDOMETRIN [Suspect]
     Active Substance: PROGESTERONE
     Indication: Product used for unknown indication
     Dosage: UNK
     Route: 065
  2. ETANERCEPT [Suspect]
     Active Substance: ETANERCEPT
     Indication: Psoriatic arthropathy
     Dosage: UNK
     Route: 058
  3. ESTRADIOL [Suspect]
     Active Substance: ESTRADIOL
     Indication: Product used for unknown indication
     Route: 065
  4. LEFLUNOMIDE [Suspect]
     Active Substance: LEFLUNOMIDE
     Indication: Product used for unknown indication
     Route: 065
  5. XELJANZ [Suspect]
     Active Substance: TOFACITINIB CITRATE
     Indication: Psoriatic arthropathy
     Dosage: 5 MG, 2 TIMES DAILY
     Route: 048

REACTIONS (9)
  - Rheumatoid arthritis [Unknown]
  - Streptococcal infection [Unknown]
  - Memory impairment [Unknown]
  - Mobility decreased [Unknown]
  - Disease risk factor [Unknown]
  - Pain [Unknown]
  - Premature ageing [Unknown]
  - Weight decreased [Unknown]
  - Drug ineffective [Unknown]
